FAERS Safety Report 9922554 (Version 1)
Quarter: 2014Q1

REPORT INFORMATION
  Report Type: Spontaneous
  Country: US (occurrence: US)
  Receive Date: 20140225
  Receipt Date: 20140225
  Transmission Date: 20141002
  Serious: No
  Sender: FDA-Public Use
  Company Number: US-ABBVIE-13P-163-1041414-00

PATIENT
  Age: 64 Year
  Sex: Male

DRUGS (2)
  1. ANDROGEL [Suspect]
     Indication: BLOOD TESTOSTERONE DECREASED
     Dosage: 2 PUMPS DAILY
     Dates: start: 20120124
  2. ANDROGEL (ABBOTT) [Suspect]
     Indication: BLOOD TESTOSTERONE DECREASED
     Dates: start: 201011, end: 20120124

REACTIONS (2)
  - Prostatic specific antigen increased [Unknown]
  - Prostatic specific antigen increased [Unknown]
